FAERS Safety Report 13587927 (Version 2)
Quarter: 2018Q2

REPORT INFORMATION
  Report Type: Spontaneous
  Country: JP (occurrence: JP)
  Receive Date: 20170527
  Receipt Date: 20180426
  Transmission Date: 20180711
  Serious: Yes (Other)
  Sender: FDA-Public Use
  Company Number: JP-ACCORD-052086

PATIENT
  Sex: Male

DRUGS (6)
  1. ETOPOSIDE. [Suspect]
     Active Substance: ETOPOSIDE
     Indication: TESTICULAR GERM CELL TUMOUR MIXED
     Dosage: DAY 1 TO 5
  2. CISPLATIN. [Suspect]
     Active Substance: CISPLATIN
     Indication: TESTICULAR GERM CELL TUMOUR MIXED
     Dosage: DAY 1 TO 5
  3. BLEOMYCIN [Suspect]
     Active Substance: BLEOMYCIN SULFATE
     Indication: TESTICULAR GERM CELL TUMOUR MIXED
     Dosage: 30 MG/ BODY (DAY 2, 9) WAS ADMINISTERED
  4. DEXAMETHASONE. [Concomitant]
     Active Substance: DEXAMETHASONE
     Dosage: WAS ADMINISTERED ON DAY 2
  5. MANNITOL. [Concomitant]
     Active Substance: MANNITOL
     Dosage: ON DAY 1-5
  6. FUROSEMIDE. [Concomitant]
     Active Substance: FUROSEMIDE
     Dosage: ON DAY 1-5

REACTIONS (3)
  - Epilepsy [Recovered/Resolved]
  - Cerebral venous thrombosis [Recovered/Resolved]
  - Hypercoagulation [Recovered/Resolved]
